FAERS Safety Report 24038744 (Version 3)
Quarter: 2024Q3

REPORT INFORMATION
  Report Type: Spontaneous
  Country: FR (occurrence: FR)
  Receive Date: 20240702
  Receipt Date: 20240920
  Transmission Date: 20241017
  Serious: Yes (Other)
  Sender: CELLTRION
  Company Number: FR-CELLTRION INC.-2024FR015622

PATIENT

DRUGS (6)
  1. INFLIXIMAB [Suspect]
     Active Substance: INFLIXIMAB
     Indication: Colitis ulcerative
     Route: 065
  2. REMICADE [Suspect]
     Active Substance: INFLIXIMAB
     Indication: Colitis ulcerative
     Dosage: 10 MG/KG, Q4WEEKS (DURATION: 1.5 YEARS), 700 MG
     Route: 042
     Dates: start: 20240209
  3. REMICADE [Suspect]
     Active Substance: INFLIXIMAB
     Dosage: 500 MG EVERY 8 WEEKS (DURATION 1.5 YEARS)
     Route: 042
     Dates: start: 2023
  4. REMICADE [Suspect]
     Active Substance: INFLIXIMAB
     Dosage: 70 MG, ABOUT 10 DAYS AGO, DURATION OF DRUG ADMINISTRATION: 1.5 YEARS
     Route: 042
  5. LERCANIDIPINE [Concomitant]
     Active Substance: LERCANIDIPINE
     Dosage: 10, EVERY 0.5
  6. TELMISARTAN [Concomitant]
     Active Substance: TELMISARTAN
     Indication: Hypertension
     Dosage: 40, EVERY 0.5

REACTIONS (7)
  - Colitis ulcerative [Unknown]
  - Muscle disorder [Unknown]
  - Tendon disorder [Unknown]
  - Influenza like illness [Unknown]
  - Chills [Unknown]
  - Fatigue [Unknown]
  - Off label use [Unknown]
